FAERS Safety Report 19278264 (Version 1)
Quarter: 2021Q2

REPORT INFORMATION
  Report Type: Spontaneous
  Country: US (occurrence: US)
  Receive Date: 20210519
  Receipt Date: 20210519
  Transmission Date: 20210717
  Serious: Yes (Hospitalization)
  Sender: FDA-Public Use
  Company Number: None

PATIENT
  Age: 59 Year
  Sex: Female

DRUGS (1)
  1. PIQRAY [Suspect]
     Active Substance: ALPELISIB
     Route: 048
     Dates: start: 202012

REACTIONS (5)
  - Bone pain [None]
  - Dysphagia [None]
  - Oesophageal perforation [None]
  - Radiation injury [None]
  - Pharyngeal swelling [None]

NARRATIVE: CASE EVENT DATE: 20210510
